FAERS Safety Report 6982907-4 (Version None)
Quarter: 2010Q3

REPORT INFORMATION
  Report Type: 
  Country: None (occurrence: None)
  Receive Date: 20100914
  Receipt Date: 20100519
  Transmission Date: 20110219
  Serious: Yes (Other)
  Sender: FDA-Public Use
  Company Number: US-PFIZER INC-2010050377

PATIENT
  Sex: Male
  Weight: 80.2 kg

DRUGS (3)
  1. LYRICA [Suspect]
     Indication: RESTLESS LEGS SYNDROME
     Dosage: 50 MG, 2-3 TIMES DAILY
     Route: 048
     Dates: start: 20090809, end: 20100415
  2. LYRICA [Suspect]
     Indication: NEURALGIA
  3. ULTRAM [Suspect]
     Indication: NEURALGIA
     Dosage: UNK

REACTIONS (3)
  - DRUG INEFFECTIVE [None]
  - NEURALGIA [None]
  - NIGHTMARE [None]
